FAERS Safety Report 7327364-3 (Version None)
Quarter: 2011Q1

REPORT INFORMATION
  Report Type: 
  Country: None (occurrence: None)
  Receive Date: 20110302
  Receipt Date: 20110221
  Transmission Date: 20110831
  Serious: Yes (Death, Hospitalization)
  Sender: FDA-Public Use
  Company Number: JP-BAYER-2011-005110

PATIENT
  Sex: Male
  Weight: 66 kg

DRUGS (9)
  1. GASMOTIN [Concomitant]
     Indication: DYSPEPSIA
     Dosage: DAILY DOSE 15 MG
     Route: 048
     Dates: start: 20100930
  2. NEXAVAR [Suspect]
     Dosage: 800 MG, UNK
     Route: 048
     Dates: start: 20101019, end: 20110120
  3. TAKEPRON [Concomitant]
     Indication: GASTRIC ULCER
     Dosage: DAILY DOSE 30 MG
     Route: 048
     Dates: start: 20100930
  4. NEXAVAR [Suspect]
     Dosage: 400 MG, UNK
     Route: 048
     Dates: start: 20110121, end: 20110131
  5. MAGMITT [Concomitant]
     Indication: CONSTIPATION
     Dosage: DAILY DOSE 1000 MG
     Route: 048
     Dates: start: 20100930
  6. UNCODEABLE ^UNCLASSIFIABLE^ [Concomitant]
     Indication: MUSCLE SPASMS
     Dosage: DAILY DOSE 7.5 G
     Route: 048
     Dates: start: 20100930
  7. NEXAVAR [Suspect]
     Indication: HEPATIC NEOPLASM MALIGNANT
     Dosage: DAILY DOSE 400 MG
     Route: 048
     Dates: start: 20101005, end: 20101018
  8. LASIX [Concomitant]
     Indication: HYPERTENSION
     Dosage: DAILY DOSE 40 MG
     Route: 048
     Dates: start: 20100930
  9. MICARDIS [Concomitant]
     Indication: HYPERTENSION
     Dosage: DAILY DOSE 40 MG
     Route: 048
     Dates: start: 20101016

REACTIONS (3)
  - STAPHYLOCOCCAL INFECTION [None]
  - TUBERCULOSIS [None]
  - EPILEPSY [None]
